FAERS Safety Report 5952596-6 (Version None)
Quarter: 2008Q4

REPORT INFORMATION
  Report Type: 
  Country: None (occurrence: None)
  Receive Date: 20081031
  Receipt Date: 20070901
  Transmission Date: 20090506
  Serious: Yes (Other)
  Sender: FDA-Public Use
  Company Number: US022266

PATIENT
  Sex: Male
  Weight: 3.75 kg

DRUGS (2)
  1. MODAFINIL [Suspect]
     Indication: NARCOLEPSY
     Dosage: 400 MG QD TRANSPLACENTAL
     Route: 064
     Dates: start: 19950823, end: 19950910
  2. PLACEBO [Suspect]
     Indication: NARCOLEPSY
     Dosage: 400 MG QD TRANSPLACENTAL
     Route: 064
     Dates: start: 19950823, end: 19950910

REACTIONS (2)
  - ABDOMINAL PAIN [None]
  - PREMATURE BABY [None]
